FAERS Safety Report 7813974-3 (Version None)
Quarter: 2011Q4

REPORT INFORMATION
  Report Type: 
  Country: None (occurrence: None)
  Receive Date: 20111014
  Receipt Date: 20111003
  Transmission Date: 20120403
  Serious: Yes (Hospitalization, Other)
  Sender: FDA-Public Use
  Company Number: JP-PFIZER INC-2011245186

PATIENT
  Age: 70 Year
  Sex: Male
  Weight: 55 kg

DRUGS (5)
  1. FLUOROURACIL [Concomitant]
     Dosage: 3750 MG/BODY/D1-2 (2435.1 MG/M2/D1-2), CYCLIC
     Route: 041
     Dates: start: 20110111, end: 20110124
  2. LEVOLEUCOVORIN CALCIUM [Concomitant]
     Indication: COLORECTAL CANCER
     Dosage: 300 MG/BODY (194.8 MG/M2), CYCLIC
     Route: 041
     Dates: start: 20110111, end: 20110124
  3. FLUOROURACIL [Concomitant]
     Indication: COLORECTAL CANCER
     Dosage: 600 MG/BODY (389.6 MG/M2), CYCLIC
     Route: 040
     Dates: start: 20110111, end: 20110124
  4. AVASTIN [Concomitant]
     Indication: COLORECTAL CANCER
     Dosage: 300 MG/BODY, CYCLIC
     Route: 041
     Dates: start: 20110111, end: 20110124
  5. CAMPTOSAR [Suspect]
     Indication: COLORECTAL CANCER
     Dosage: 230 MG/BODY (149.4 MG/M2), CYCLIC
     Route: 041
     Dates: start: 20110111, end: 20110124

REACTIONS (2)
  - HEPATIC FAILURE [None]
  - HYPERAMMONAEMIA [None]
